FAERS Safety Report 7462606-5 (Version None)
Quarter: 2011Q2

REPORT INFORMATION
  Report Type: 
  Country: None (occurrence: None)
  Receive Date: 20110506
  Receipt Date: 20110426
  Transmission Date: 20111010
  Serious: Yes (Life-Threatening, Other)
  Sender: FDA-Public Use
  Company Number: US-CELGENEUS-163-21880-11030215

PATIENT
  Sex: Male
  Weight: 98.518 kg

DRUGS (21)
  1. CARVEDILOL [Concomitant]
     Dosage: 12.5 MILLIGRAM
     Route: 048
  2. REVLIMID [Suspect]
     Indication: MULTIPLE MYELOMA
     Dosage: 5 MILLIGRAM
     Route: 048
     Dates: start: 20100607, end: 20100922
  3. ACYCLOVIR [Concomitant]
     Route: 065
  4. NIACIN [Concomitant]
     Indication: HYPERLIPIDAEMIA
     Dosage: 500 MILLIGRAM
     Route: 048
  5. LOVAZA [Concomitant]
     Dosage: 1 GRAM
     Route: 048
  6. COREG [Concomitant]
     Route: 065
  7. CALCIUM ACETATE [Concomitant]
     Dosage: 667 MILLIGRAM
     Route: 048
  8. HYDRALAZINE HCL [Concomitant]
     Dosage: 25 MILLIGRAM
     Route: 048
  9. ISOSORBIDE DINITRATE [Concomitant]
     Dosage: 10 MILLIGRAM
     Route: 048
  10. ONDANSETRON [Concomitant]
     Dosage: 8 MILLIGRAM
     Route: 048
  11. TORSEMIDE [Concomitant]
     Dosage: 100 MILLIGRAM
     Route: 048
  12. WARFARIN SODIUM [Concomitant]
     Dosage: 1
     Route: 048
  13. CLOPIDOGREL BISULFATE [Concomitant]
     Dosage: 75 MILLIGRAM
     Route: 048
  14. EPOETIN ALFA [Concomitant]
     Dosage: 1000UNIT/ML 1688 UNITS
     Route: 050
  15. RENO CAPS [Concomitant]
     Dosage: 1 MILLIGRAM
     Route: 048
  16. AMIODARONE [Concomitant]
     Dosage: 1
     Route: 048
  17. ASPIRIN [Concomitant]
     Dosage: 81 MILLIGRAM
     Route: 048
  18. INSULIN [Concomitant]
     Indication: BLOOD GLUCOSE INCREASED
     Dosage: 100UNIT/ML SLIDING SCALE
     Route: 050
  19. MIRALAX [Concomitant]
     Dosage: 1 PACKET
     Route: 065
  20. VITAMIN E [Concomitant]
     Dosage: 400 UNIT
     Route: 048
  21. SIMVASTATIN [Concomitant]
     Dosage: 20 MILLIGRAM
     Route: 048

REACTIONS (1)
  - MYOCARDIAL INFARCTION [None]
